FAERS Safety Report 6216309-5 (Version None)
Quarter: 2009Q2

REPORT INFORMATION
  Report Type: 
  Country: None (occurrence: None)
  Receive Date: 20090603
  Receipt Date: 20090603
  Transmission Date: 20091009
  Serious: Yes (Hospitalization, Other)
  Sender: FDA-Public Use
  Company Number: None

PATIENT
  Sex: Male
  Weight: 91.2 kg

DRUGS (4)
  1. CALCIUM CARBONATE [Suspect]
     Dosage: 58500 MG
     Dates: start: 20090202, end: 20090529
  2. VITAMIN D [Suspect]
     Dosage: 46800 MG
     Dates: start: 20090202, end: 20090529
  3. ZOMETA [Suspect]
     Dosage: IV EVERY 6 MONTHS FOR A TOTAL OF 3 YEARS.
     Dates: start: 20090202, end: 20090202
  4. LUPRON [Concomitant]

REACTIONS (3)
  - CONDITION AGGRAVATED [None]
  - DYSPNOEA [None]
  - OEDEMA [None]
